FAERS Safety Report 13779882 (Version 2)
Quarter: 2017Q3

REPORT INFORMATION
  Report Type: Report from Study
  Country: CN (occurrence: CN)
  Receive Date: 20170723
  Receipt Date: 20170727
  Transmission Date: 20171127
  Serious: Yes (Other)
  Sender: FDA-Public Use
  Company Number: PHHY2017CN103887

PATIENT
  Sex: Female

DRUGS (2)
  1. TYKERB [Suspect]
     Active Substance: LAPATINIB DITOSYLATE
     Indication: BREAST CANCER
     Dosage: 1250 MG, (5 TABLETS) QD
     Route: 065
     Dates: start: 20160630
  2. XELODA [Suspect]
     Active Substance: CAPECITABINE
     Indication: BREAST CANCER
     Dosage: 1.5 G, BID (CONTINUED FOR 14 DAYS, STOPPED FOR 7 DAYS, 21 DAYS AS A CYCLE)
     Route: 048
     Dates: start: 20160630

REACTIONS (4)
  - White blood cell count decreased [Unknown]
  - Blood bilirubin increased [Unknown]
  - Vomiting [Recovered/Resolved]
  - Headache [Recovering/Resolving]

NARRATIVE: CASE EVENT DATE: 20161220
